FAERS Safety Report 7569015-9 (Version None)
Quarter: 2011Q2

REPORT INFORMATION
  Report Type: 
  Country: None (occurrence: None)
  Receive Date: 20110623
  Receipt Date: 20110614
  Transmission Date: 20111010
  Serious: Yes (Hospitalization)
  Sender: FDA-Public Use
  Company Number: FR-ASTRAZENECA-2011SE36751

PATIENT
  Age: 78 Year
  Sex: Male
  Weight: 86 kg

DRUGS (7)
  1. PLAVIX [Suspect]
     Indication: CORONARY ARTERY INSUFFICIENCY
     Route: 048
     Dates: start: 20110207, end: 20110323
  2. ASPIRIN [Suspect]
     Indication: CORONARY ARTERY INSUFFICIENCY
     Route: 048
     Dates: start: 20110207
  3. ART 50 [Concomitant]
  4. CRESTOR [Suspect]
     Indication: CORONARY ARTERY INSUFFICIENCY
     Route: 048
     Dates: start: 20090801, end: 20110325
  5. BISOPROLOL FUMARATE [Concomitant]
  6. FORLAX [Concomitant]
  7. PLAVIX [Suspect]
     Route: 048
     Dates: start: 20110325

REACTIONS (8)
  - HEPATITIS CHOLESTATIC [None]
  - NAUSEA [None]
  - DECREASED APPETITE [None]
  - JAUNDICE [None]
  - PRURITUS [None]
  - ABDOMINAL PAIN [None]
  - PYREXIA [None]
  - ASTHENIA [None]
